FAERS Safety Report 20774299 (Version 3)
Quarter: 2022Q4

REPORT INFORMATION
  Report Type: Report from Study
  Country: US (occurrence: US)
  Receive Date: 20220502
  Receipt Date: 20221021
  Transmission Date: 20230113
  Serious: Yes (Other)
  Sender: FDA-Public Use
  Company Number: US-ABBVIE-22K-163-4375623-00

PATIENT
  Age: 63 Year
  Sex: Female

DRUGS (1)
  1. HUMIRA [Suspect]
     Active Substance: ADALIMUMAB
     Indication: Rheumatoid arthritis
     Route: 058

REACTIONS (11)
  - Surgery [Unknown]
  - Ankle operation [Unknown]
  - Exostosis [Unknown]
  - Hand deformity [Unknown]
  - Chest pain [Recovering/Resolving]
  - Nausea [Unknown]
  - Gait disturbance [Unknown]
  - Peripheral swelling [Unknown]
  - Arthritis [Unknown]
  - Muscle atrophy [Unknown]
  - Foot operation [Unknown]

NARRATIVE: CASE EVENT DATE: 20220405
